FAERS Safety Report 7152686-9 (Version None)
Quarter: 2010Q4

REPORT INFORMATION
  Report Type: 
  Country: None (occurrence: None)
  Receive Date: 20101213
  Receipt Date: 20101208
  Transmission Date: 20110411
  Serious: Yes (Hospitalization)
  Sender: FDA-Public Use
  Company Number: US-BRISTOL-MYERS SQUIBB COMPANY-15430960

PATIENT
  Age: 53 Year
  Sex: Male

DRUGS (2)
  1. COUMADIN [Suspect]
     Indication: PROPHYLAXIS
     Dosage: USED DRUG ON AND OFF; RESTARTED MID NOV2010.
  2. LOVENOX [Suspect]
     Indication: TOOTH EXTRACTION
     Dosage: SUBCUTANEOUS SEP2010; 80MG 2/D (17SEP10-NOV10), NOV10-ONG; PARENTERAL INJ, 100MG/ML.
     Route: 058
     Dates: start: 20090901, end: 20091101

REACTIONS (2)
  - HAEMATURIA [None]
  - OSTEOPOROSIS [None]
